FAERS Safety Report 16002415 (Version 1)
Quarter: 2019Q1

REPORT INFORMATION
  Report Type: Report from Study
  Country: None (occurrence: US)
  Receive Date: 20190225
  Receipt Date: 20190225
  Transmission Date: 20190418
  Serious: Yes (Hospitalization, Other)
  Sender: FDA-Public Use
  Company Number: US-ABBVIE-18K-163-2465254-00

PATIENT
  Age: 55 Year
  Sex: Female

DRUGS (2)
  1. PREDNISONE. [Concomitant]
     Active Substance: PREDNISONE
     Indication: PRODUCT USED FOR UNKNOWN INDICATION
  2. HUMIRA [Suspect]
     Active Substance: ADALIMUMAB
     Indication: RHEUMATOID ARTHRITIS
     Route: 058

REACTIONS (14)
  - Amnesia [Recovered/Resolved]
  - Thyroid neoplasm [Not Recovered/Not Resolved]
  - Fatigue [Not Recovered/Not Resolved]
  - Fall [Unknown]
  - Hypoacusis [Recovered/Resolved]
  - Joint instability [Not Recovered/Not Resolved]
  - Cerumen impaction [Recovered/Resolved]
  - Joint swelling [Unknown]
  - Vertigo [Recovered/Resolved]
  - Peripheral swelling [Unknown]
  - Neuropathy peripheral [Unknown]
  - Cough [Not Recovered/Not Resolved]
  - Osteoarthritis [Recovered/Resolved]
  - Intervertebral disc degeneration [Not Recovered/Not Resolved]

NARRATIVE: CASE EVENT DATE: 2008
